FAERS Safety Report 6871083-4 (Version None)
Quarter: 2010Q3

REPORT INFORMATION
  Report Type: 
  Country: None (occurrence: None)
  Receive Date: 20100721
  Receipt Date: 20100716
  Transmission Date: 20110219
  Serious: Yes (Other)
  Sender: FDA-Public Use
  Company Number: JP-SOLVAY-00310003505

PATIENT
  Age: 10 Year
  Sex: Female

DRUGS (4)
  1. LUVOX [Suspect]
     Indication: ANXIETY DISORDER
     Dosage: 12.5 MILLIGRAM(S), 25 MILLIGRAM(S)
     Route: 048
     Dates: start: 20100428, end: 20100501
  2. LUVOX [Suspect]
     Indication: ANXIETY DISORDER
     Dosage: 12.5 MILLIGRAM(S), 25 MILLIGRAM(S)
     Route: 048
     Dates: start: 20100502, end: 20100501
  3. LUVOX [Suspect]
     Indication: ANXIETY DISORDER
     Dosage: 12.5 MILLIGRAM(S), 25 MILLIGRAM(S)
     Route: 048
     Dates: start: 20100501, end: 20100514
  4. RIZE (CLOTIAZEPAM) [Concomitant]

REACTIONS (9)
  - ACTIVATION SYNDROME [None]
  - BLOOD ALKALINE PHOSPHATASE INCREASED [None]
  - HAEMOGLOBIN DECREASED [None]
  - IMPULSIVE BEHAVIOUR [None]
  - IRRITABILITY [None]
  - MEAN CELL VOLUME DECREASED [None]
  - RED BLOOD CELL COUNT INCREASED [None]
  - RESTLESSNESS [None]
  - SUICIDAL IDEATION [None]
